FAERS Safety Report 9253085 (Version 2)
Quarter: 2013Q2

REPORT INFORMATION
  Report Type: Spontaneous
  Country: US (occurrence: US)
  Receive Date: 20130424
  Receipt Date: 20130626
  Transmission Date: 20140414
  Serious: No
  Sender: FDA-Public Use
  Company Number: US-PFIZER INC-2013124837

PATIENT
  Age: 63 Year
  Sex: Female

DRUGS (9)
  1. XELJANZ [Suspect]
     Indication: RHEUMATOID ARTHRITIS
     Dosage: 5 MG, 2X/DAY
     Route: 048
  2. PLAQUENIL [Concomitant]
     Dosage: 200 MG TABLET, UNK
  3. PREDNISONE [Concomitant]
     Dosage: 5 MG TABLET, UNK
  4. FOLIC ACID [Concomitant]
     Dosage: 1 MG TABLET, UNK
  5. METHOTREXATE [Concomitant]
     Dosage: 25 MG/ML, UNK
  6. LIPITOR [Concomitant]
     Dosage: 10 MG TABLET, UNK
  7. DIOVAN HCT [Concomitant]
     Dosage: 80-12.5 MG TABLET, UNK
  8. LEVOTHYROXINE [Concomitant]
     Dosage: 75 UG TABLET, UNK
  9. CALCIUM WITH VITAMIN D [Concomitant]
     Dosage: UNK

REACTIONS (1)
  - Drug ineffective [Unknown]
